FAERS Safety Report 7456807-X (Version None)
Quarter: 2011Q2

REPORT INFORMATION
  Report Type: 
  Country: None (occurrence: None)
  Receive Date: 20110504
  Receipt Date: 20110426
  Transmission Date: 20111010
  Serious: Yes (Hospitalization)
  Sender: FDA-Public Use
  Company Number: US-BIOGENIDEC-2011BI010879

PATIENT
  Age: 71 Year
  Sex: Female

DRUGS (3)
  1. AVONEX [Suspect]
     Indication: MULTIPLE SCLEROSIS
     Route: 030
     Dates: start: 19991101
  2. AVONEX [Suspect]
     Route: 030
     Dates: start: 20030101, end: 20101001
  3. AVONEX [Suspect]
     Route: 030

REACTIONS (5)
  - LOSS OF CONTROL OF LEGS [None]
  - VISUAL ACUITY REDUCED [None]
  - AORTIC ANEURYSM RUPTURE [None]
  - DEEP VEIN THROMBOSIS [None]
  - ARTERIAL RUPTURE [None]
